FAERS Safety Report 8838306 (Version 1)
Quarter: 2012Q4

REPORT INFORMATION
  Report Type: 
  Country: CA (occurrence: CA)
  Receive Date: 20121012
  Receipt Date: 20121012
  Transmission Date: 20130627
  Serious: Yes (Other)
  Sender: FDA-Public Use
  Company Number: CA-GLAXOSMITHKLINE-A0991495A

PATIENT
  Sex: Male

DRUGS (3)
  1. TYKERB [Suspect]
     Indication: BREAST CANCER METASTATIC
     Dosage: 1250MG Per day
     Route: 048
     Dates: start: 20100619, end: 201209
  2. HERCEPTIN [Concomitant]
  3. MICARDIS [Concomitant]

REACTIONS (3)
  - Breast cancer metastatic [Unknown]
  - Bronchitis [Recovered/Resolved]
  - Drug ineffective [Unknown]
